FAERS Safety Report 16085139 (Version 2)
Quarter: 2019Q1

REPORT INFORMATION
  Report Type: Spontaneous
  Country: US (occurrence: US)
  Receive Date: 20190318
  Receipt Date: 20190319
  Transmission Date: 20190418
  Serious: Yes (Other)
  Sender: FDA-Public Use
  Company Number: US-PFIZER INC-2019115705

PATIENT
  Age: 12 Year
  Sex: Female

DRUGS (9)
  1. DOXORUBICIN HCL [Suspect]
     Active Substance: DOXORUBICIN HYDROCHLORIDE
     Dosage: UNK, CYCLIC (CONTINUATION THERAPY INITIATED 2 WEEKS AFTER TUMOR RESECTION)
  2. CISPLATIN. [Suspect]
     Active Substance: CISPLATIN
     Indication: OSTEOSARCOMA
     Dosage: UNK, CYCLIC (TWO CYCLES)
  3. METHOTREXATE SODIUM. [Suspect]
     Active Substance: METHOTREXATE SODIUM
     Dosage: UNK, CYCLIC (CONTINUATION THERAPY INITIATED 2 WEEKS AFTER TUMOR RESECTION, HIGH DOSE)
  4. CISPLATIN. [Suspect]
     Active Substance: CISPLATIN
     Dosage: UNK, CYCLIC (CONTINUATION THERAPY INITIATED 2 WEEKS AFTER TUMOR RESECTION)
  5. METHOTREXATE SODIUM. [Suspect]
     Active Substance: METHOTREXATE SODIUM
     Indication: OSTEOSARCOMA
     Dosage: UNK, CYCLIC (FOUR CYCLES OF HIGH-DOSE)
  6. CYCLOPHOSPHAMIDE. [Suspect]
     Active Substance: CYCLOPHOSPHAMIDE
     Indication: OSTEOSARCOMA
     Dosage: UNK, CYCLIC (6 G/M^2 TOTAL DOSE)(CONTINUATION THERAPY INITIATED 2 WEEKS AFTER TUMOR RESECTION)
  7. DOXORUBICIN HCL [Suspect]
     Active Substance: DOXORUBICIN HYDROCHLORIDE
     Indication: OSTEOSARCOMA
     Dosage: UNK, CYCLIC (TWO CYCLES)
  8. BLEOMYCIN SULFATE [Suspect]
     Active Substance: BLEOMYCIN SULFATE
     Indication: OSTEOSARCOMA
     Dosage: UNK, CYCLIC (CONTINUATION THERAPY INITIATED 2 WEEKS AFTER TUMOR RESECTION)
  9. DACTINOMYCIN [Suspect]
     Active Substance: DACTINOMYCIN
     Indication: OSTEOSARCOMA
     Dosage: UNK, CYCLIC (CONTINUATION THERAPY INITIATED 2 WEEKS AFTER TUMOR RESECTION)

REACTIONS (4)
  - Leukaemia [Unknown]
  - Second primary malignancy [Unknown]
  - Neutropenia [Unknown]
  - Myelodysplastic syndrome [Unknown]
